FAERS Safety Report 23675382 (Version 2)
Quarter: 2025Q3

REPORT INFORMATION
  Report Type: Spontaneous
  Country: JP (occurrence: JP)
  Receive Date: 20240327
  Receipt Date: 20250930
  Transmission Date: 20251021
  Serious: Yes (Other)
  Sender: NOVARTIS
  Company Number: JP-002147023-NVSJ2023JP016853

PATIENT
  Age: 23 Year
  Sex: Male

DRUGS (1)
  1. TASIGNA [Suspect]
     Active Substance: NILOTINIB
     Indication: Chronic myeloid leukaemia
     Route: 048

REACTIONS (4)
  - Chronic myeloid leukaemia [Unknown]
  - Platelet count decreased [Unknown]
  - Malignant neoplasm progression [Unknown]
  - Drug resistance [Not Recovered/Not Resolved]
